FAERS Safety Report 12426966 (Version 1)
Quarter: 2016Q2

REPORT INFORMATION
  Report Type: Spontaneous
  Country: US (occurrence: US)
  Receive Date: 20160601
  Receipt Date: 20160601
  Transmission Date: 20160815
  Serious: No
  Sender: FDA-Public Use
  Company Number: US-SEPTODONT-201603262

PATIENT
  Age: 45 Year
  Sex: Female

DRUGS (1)
  1. SEPTOCAINE AND EPINEPHRINE [Suspect]
     Active Substance: ARTICAINE HYDROCHLORIDE\EPINEPHRINE BITARTRATE
     Indication: LOCAL ANAESTHESIA
     Dosage: IAN/LINGUAL BLOCK COMBINATION VIA THE TRADITIONAL TECHNIQUE FOR ROUTINE RESTORATIVE DENTAL TREATMENT
     Route: 004

REACTIONS (2)
  - Hypoaesthesia oral [Not Recovered/Not Resolved]
  - Ageusia [Not Recovered/Not Resolved]
